FAERS Safety Report 5716330-7 (Version None)
Quarter: 2008Q2

REPORT INFORMATION
  Report Type: 
  Country: None (occurrence: None)
  Receive Date: 20080424
  Receipt Date: 20080415
  Transmission Date: 20081010
  Serious: Yes (Other)
  Sender: FDA-Public Use
  Company Number: JP-MERCK-0804USA03406

PATIENT
  Age: 56 Year
  Sex: Male
  Weight: 70 kg

DRUGS (3)
  1. HYZAAR [Suspect]
     Indication: HYPERTENSION
     Route: 048
     Dates: start: 20080220, end: 20080309
  2. CONIEL [Concomitant]
     Route: 048
     Dates: start: 20070815
  3. LIVALO [Concomitant]
     Route: 048
     Dates: start: 20070815

REACTIONS (3)
  - CHROMATURIA [None]
  - URINE OUTPUT DECREASED [None]
  - WRONG TECHNIQUE IN DRUG USAGE PROCESS [None]
